FAERS Safety Report 10671631 (Version 2)
Quarter: 2015Q2

REPORT INFORMATION
  Report Type: Spontaneous
  Country: US (occurrence: US)
  Receive Date: 20141223
  Receipt Date: 20150518
  Transmission Date: 20150821
  Serious: No
  Sender: FDA-Public Use
  Company Number: US-GLAXOSMITHKLINE-US2014GSK040287

PATIENT
  Sex: Male

DRUGS (1)
  1. FLOLAN [Suspect]
     Active Substance: EPOPROSTENOL SODIUM
     Indication: COR PULMONALE CHRONIC
     Dosage: 33 NG/KG/MIN CONTINUOUS
     Dates: start: 20040603

REACTIONS (1)
  - Sinusitis [Recovered/Resolved]
